FAERS Safety Report 7653527-3 (Version None)
Quarter: 2011Q3

REPORT INFORMATION
  Report Type: 
  Country: None (occurrence: None)
  Receive Date: 20110728
  Receipt Date: 20100803
  Transmission Date: 20111222
  Serious: Yes (Life-Threatening)
  Sender: FDA-Public Use
  Company Number: MYVW-PR-1007S-0050

PATIENT
  Sex: Male

DRUGS (7)
  1. MYOVIEW [Suspect]
     Indication: PRODUCT USED FOR UNKNOWN INDICATION
     Dosage: 407 MBQ, SINGLE DOSE, INTRAVENOUS
     Route: 042
     Dates: start: 20100709, end: 20100709
  2. CARVEDILOL (SALBUTAMOL) [Concomitant]
  3. TECHNETIUM (TC99M) GENERATOR (SODIUM PERTECHNETATE TC99M) [Concomitant]
  4. EZETIMIBE AND SIMVASTATIN (VYTORIN) [Concomitant]
  5. ACETYLSALICYLIC ACID (ACETYLSALICYLATE ACID) [Concomitant]
  6. CLOPIDOGREL BISULFATE (PLAVIX) (CLOPIDOGREL SULFATE) [Concomitant]
  7. ALBUTEROL [Concomitant]

REACTIONS (2)
  - RESPIRATORY ARREST [None]
  - DYSPNOEA [None]
